FAERS Safety Report 6500090-6 (Version None)
Quarter: 2009Q4

REPORT INFORMATION
  Report Type: 
  Country: None (occurrence: None)
  Receive Date: 20091214
  Receipt Date: 20091214
  Transmission Date: 20100525
  Serious: No
  Sender: FDA-Public Use
  Company Number: None

PATIENT
  Age: 7 Year
  Sex: Female
  Weight: 20.4119 kg

DRUGS (1)
  1. SINGULAIR [Suspect]
     Dosage: 4MG DAILY PO A FEW MONTH MAYBE
     Route: 048

REACTIONS (3)
  - ABNORMAL BEHAVIOUR [None]
  - AGGRESSION [None]
  - IRRITABILITY [None]
